FAERS Safety Report 21218141 (Version 1)
Quarter: 2022Q3

REPORT INFORMATION
  Report Type: Spontaneous
  Country: US (occurrence: None)
  Receive Date: 20220816
  Receipt Date: 20220816
  Transmission Date: 20221026
  Serious: Yes (Other)
  Sender: FDA-Public Use
  Company Number: None

PATIENT
  Age: 79 Year
  Sex: Female
  Weight: 78.47 kg

DRUGS (11)
  1. MAGNESIUM CITRATE [Suspect]
     Active Substance: MAGNESIUM CITRATE
     Indication: Colonoscopy
     Dosage: OTHER QUANTITY : 2 ENTIRE BOTTLES;?OTHER FREQUENCY : TWICE OVER A 7HR ;?
     Route: 048
     Dates: start: 20220619, end: 20220619
  2. ASPIRIN [Concomitant]
     Active Substance: ASPIRIN
  3. ATORVASTATIN [Concomitant]
     Active Substance: ATORVASTATIN
  4. FENOFIBRATE [Concomitant]
     Active Substance: FENOFIBRATE
  5. HYDROCHLOROTHIAZIDE [Concomitant]
     Active Substance: HYDROCHLOROTHIAZIDE
  6. LISINOPRIL [Concomitant]
     Active Substance: LISINOPRIL
  7. MULTIVITAMIN [Concomitant]
  8. STOOL SOFTENER (DOCUSATE) [Concomitant]
     Active Substance: DOCUSATE
  9. FISH OIL [Concomitant]
  10. VITAMIN D3 [Concomitant]
     Active Substance: CHOLECALCIFEROL
  11. COQ10 [Concomitant]

REACTIONS (2)
  - Vomiting [None]
  - Recalled product administered [None]
